FAERS Safety Report 13515441 (Version 2)
Quarter: 2017Q2

REPORT INFORMATION
  Report Type: Spontaneous
  Country: IT (occurrence: IT)
  Receive Date: 20170504
  Receipt Date: 20170510
  Transmission Date: 20170830
  Serious: Yes (Hospitalization)
  Sender: FDA-Public Use
  Company Number: IT-PFIZER INC-2017193352

PATIENT
  Age: 77 Year
  Sex: Female

DRUGS (8)
  1. CARDURA [Concomitant]
     Active Substance: DOXAZOSIN MESYLATE
  2. NORMIX [Concomitant]
     Active Substance: RIFAXIMIN
  3. BONVIVA [Concomitant]
     Active Substance: IBANDRONATE SODIUM
  4. DEURSIL [Concomitant]
     Active Substance: URSODIOL
  5. DAPAROX /00830802/ [Concomitant]
     Active Substance: PAROXETINE HYDROCHLORIDE
  6. VERTISERC [Concomitant]
     Active Substance: BETAHISTINE HYDROCHLORIDE
  7. TAVOR (LORAZEPAM) [Suspect]
     Active Substance: LORAZEPAM
     Indication: INNER EAR DISORDER
     Dosage: 1 DF, TOTAL
     Route: 048
     Dates: start: 20170417, end: 20170417
  8. LEXOTAN [Concomitant]
     Active Substance: BROMAZEPAM

REACTIONS (4)
  - Bradykinesia [Recovered/Resolved]
  - Sopor [Recovered/Resolved]
  - Drug use disorder [Recovered/Resolved]
  - Coma scale abnormal [Recovered/Resolved]

NARRATIVE: CASE EVENT DATE: 20170421
